FAERS Safety Report 17995943 (Version 4)
Quarter: 2021Q1

REPORT INFORMATION
  Report Type: Spontaneous
  Country: CA (occurrence: CA)
  Receive Date: 20200708
  Receipt Date: 20210311
  Transmission Date: 20210419
  Serious: Yes (Other)
  Sender: FDA-Public Use
  Company Number: CA-PFIZER INC-2020101553

PATIENT
  Age: 73 Year
  Sex: Female

DRUGS (3)
  1. INLYTA [Suspect]
     Active Substance: AXITINIB
     Dosage: 5 MG, 2X/DAY
     Route: 048
     Dates: start: 20200313, end: 2020
  2. INLYTA [Suspect]
     Active Substance: AXITINIB
     Indication: RENAL CANCER METASTATIC
     Dosage: UNK
     Dates: start: 20200210
  3. KEYTRUDA [Concomitant]
     Active Substance: PEMBROLIZUMAB
     Indication: RENAL CANCER METASTATIC
     Dosage: UNK
     Dates: start: 20200210

REACTIONS (6)
  - Rheumatoid arthritis [Unknown]
  - Polymyalgia rheumatica [Unknown]
  - Fatigue [Unknown]
  - Hypothyroidism [Unknown]
  - Condition aggravated [Unknown]
  - Glucocorticoid deficiency [Unknown]

NARRATIVE: CASE EVENT DATE: 2020
